FAERS Safety Report 10249143 (Version 1)
Quarter: 2014Q2

REPORT INFORMATION
  Report Type: Spontaneous
  Country: US (occurrence: US)
  Receive Date: 20140620
  Receipt Date: 20140620
  Transmission Date: 20141212
  Serious: Yes (Other)
  Sender: FDA-Public Use
  Company Number: US-AMGEN-USASP2014045105

PATIENT
  Sex: 0

DRUGS (2)
  1. XGEVA [Suspect]
     Indication: METASTASES TO BONE
     Route: 065
  2. FULVESTRANT [Concomitant]

REACTIONS (2)
  - Clavicle fracture [Unknown]
  - Pain [Unknown]
